FAERS Safety Report 7267414-6 (Version None)
Quarter: 2011Q1

REPORT INFORMATION
  Report Type: 
  Country: None (occurrence: None)
  Receive Date: 20110201
  Receipt Date: 20110119
  Transmission Date: 20110831
  Serious: Yes (Other)
  Sender: FDA-Public Use
  Company Number: US-GENZYME-CLOF-1000936

PATIENT
  Sex: Female
  Weight: 101.2 kg

DRUGS (17)
  1. DIPHENHYDRAMINE [Concomitant]
     Indication: PRODUCT USED FOR UNKNOWN INDICATION
     Route: 042
  2. IOVERSOL [Concomitant]
     Indication: DIAGNOSTIC PROCEDURE
     Dosage: UNK
     Route: 042
     Dates: start: 20100419, end: 20100419
  3. METOCLOPRAMIDE [Concomitant]
     Indication: ANTIEMETIC SUPPORTIVE CARE
     Dosage: UNK
     Route: 042
     Dates: start: 20100418, end: 20100418
  4. CLOFARABINE [Suspect]
     Indication: ACUTE LYMPHOCYTIC LEUKAEMIA
     Dosage: 85 MG, QDX5
     Route: 042
     Dates: start: 20100417, end: 20100421
  5. ETOPOSIDE [Suspect]
     Indication: ACUTE LYMPHOCYTIC LEUKAEMIA
     Dosage: 210 MG, QDX5
     Route: 042
     Dates: start: 20100417, end: 20100421
  6. CYCLOPHOSPHAMIDE [Suspect]
     Indication: ACUTE LYMPHOCYTIC LEUKAEMIA
     Dosage: 935 MG, QDX5
     Route: 042
     Dates: start: 20100418, end: 20100422
  7. ALLOPURINOL [Concomitant]
     Indication: PROPHYLAXIS
     Dosage: UNK
     Route: 048
     Dates: start: 20100415
  8. METHOTREXATE [Suspect]
     Dosage: 15 MG, ONCE
     Route: 037
     Dates: start: 20100430, end: 20100430
  9. VINCRISTINE [Suspect]
     Indication: ACUTE LYMPHOCYTIC LEUKAEMIA
     Dosage: 2 MG, ONCE
     Route: 042
     Dates: start: 20100501, end: 20100501
  10. VINCRISTINE [Suspect]
     Dosage: 2 MG, ONCE
     Route: 042
     Dates: start: 20100510, end: 20100510
  11. LORAZEPAM [Concomitant]
     Indication: ANTIEMETIC SUPPORTIVE CARE
     Dosage: UNK
     Route: 042
     Dates: start: 20100418
  12. ONDANSETRON [Concomitant]
     Indication: ANTIEMETIC SUPPORTIVE CARE
     Dosage: UNK
     Route: 042
     Dates: start: 20100415, end: 20100421
  13. METHOTREXATE [Suspect]
     Indication: ACUTE LYMPHOCYTIC LEUKAEMIA
     Dosage: 12 MG, ONCE
     Route: 037
     Dates: start: 20100415, end: 20100415
  14. PEG-ASPARAGINASE [Suspect]
     Indication: ACUTE LYMPHOCYTIC LEUKAEMIA
     Dosage: 5200 U, ONCE
     Route: 042
     Dates: start: 20100501, end: 20100501
  15. FLUCONAZOLE [Concomitant]
     Indication: PROPHYLAXIS
     Dosage: UNK
     Route: 048
     Dates: start: 20100417
  16. ACETAMINOPHEN [Concomitant]
     Indication: PRODUCT USED FOR UNKNOWN INDICATION
     Dosage: UNK
     Route: 048
  17. MORPHINE [Concomitant]
     Indication: PAIN
     Dosage: UNK
     Route: 042
     Dates: start: 20100415, end: 20100415

REACTIONS (3)
  - FEBRILE NEUTROPENIA [None]
  - THROMBOSIS [None]
  - BONE MARROW FAILURE [None]
